FAERS Safety Report 4596307-8 (Version None)
Quarter: 2005Q1

REPORT INFORMATION
  Report Type: 
  Country: None (occurrence: None)
  Receive Date: 20050302
  Receipt Date: 20050223
  Transmission Date: 20050727
  Serious: Yes (Life-Threatening, Hospitalization)
  Sender: FDA-Public Use
  Company Number: ES-BRISTOL-MYERS SQUIBB COMPANY-12874053

PATIENT
  Age: 40 Year
  Sex: Male
  Weight: 56 kg

DRUGS (3)
  1. EFAVIRENZ TABS 600 MG [Suspect]
     Indication: HIV INFECTION
     Route: 048
     Dates: start: 20040517, end: 20040518
  2. VIDEX EC [Suspect]
     Indication: HIV INFECTION
     Route: 048
     Dates: start: 20040517, end: 20040518
  3. EPIVIR [Suspect]
     Indication: HIV INFECTION
     Route: 048
     Dates: start: 20040517, end: 20040518

REACTIONS (4)
  - DIZZINESS [None]
  - HALLUCINATION [None]
  - PNEUMONIA [None]
  - RASH ERYTHEMATOUS [None]
